FAERS Safety Report 9567888 (Version 2)
Quarter: 2013Q3

REPORT INFORMATION
  Report Type: Spontaneous
  Country: US (occurrence: US)
  Receive Date: 20130930
  Receipt Date: 20130930
  Transmission Date: 20140515
  Serious: No
  Sender: FDA-Public Use
  Company Number: US-AMGEN-USASP2013017434

PATIENT
  Age: 43 Year
  Sex: Female
  Weight: 95.24 kg

DRUGS (3)
  1. ENBREL [Suspect]
     Indication: PSORIATIC ARTHROPATHY
     Dosage: 50 MG, UNK
     Dates: start: 2003, end: 20040222
  2. ENBREL [Suspect]
     Indication: PSORIASIS
  3. MULTIVITAMINS, PLAIN [Concomitant]
     Dosage: UNK

REACTIONS (1)
  - Visual impairment [Recovered/Resolved]
